FAERS Safety Report 5248683-0 (Version None)
Quarter: 2007Q1

REPORT INFORMATION
  Report Type: 
  Country: None (occurrence: None)
  Receive Date: 20070226
  Receipt Date: 20070226
  Transmission Date: 20070707
  Serious: Yes (Death)
  Sender: FDA-Public Use
  Company Number: None

PATIENT
  Age: 44 Year
  Sex: Female

DRUGS (1)
  1. COUMADIN [Suspect]
     Dosage: 10 MG QD PO
     Route: 048

REACTIONS (5)
  - INTERNATIONAL NORMALISED RATIO INCREASED [None]
  - OXYGEN SATURATION DECREASED [None]
  - PNEUMOTHORAX [None]
  - REFUSAL OF TREATMENT BY PATIENT [None]
  - SUBDURAL HAEMATOMA [None]
